FAERS Safety Report 20892566 (Version 1)
Quarter: 2022Q2

REPORT INFORMATION
  Report Type: Spontaneous
  Country: US (occurrence: US)
  Receive Date: 20220531
  Receipt Date: 20220531
  Transmission Date: 20220721
  Serious: No
  Sender: FDA-Public Use
  Company Number: US-CELGENE-USA-20220206507

PATIENT
  Age: 80 Year
  Sex: Female

DRUGS (1)
  1. REVLIMID [Suspect]
     Active Substance: LENALIDOMIDE
     Indication: Plasma cell myeloma
     Dosage: 15 MILLIGRAM
     Route: 048
     Dates: start: 20220119

REACTIONS (6)
  - Platelet count decreased [Unknown]
  - Psychotic disorder [Unknown]
  - Feeling hot [Unknown]
  - Body temperature increased [Unknown]
  - Petechiae [Unknown]
  - Anxiety [Unknown]

NARRATIVE: CASE EVENT DATE: 20220220
